FAERS Safety Report 8295016-1 (Version None)
Quarter: 2012Q2

REPORT INFORMATION
  Report Type: 
  Country: None (occurrence: None)
  Receive Date: 20120418
  Receipt Date: 20120417
  Transmission Date: 20120825
  Serious: Yes (Death)
  Sender: FDA-Public Use
  Company Number: US-JNJFOC-20120306519

PATIENT
  Sex: Female

DRUGS (4)
  1. NYQUIL [Suspect]
     Indication: NASOPHARYNGITIS
  2. TYLENOL (CAPLET) [Suspect]
     Indication: PAIN
     Route: 065
  3. TYLENOL (CAPLET) [Suspect]
     Route: 065
  4. NYQUIL [Suspect]
     Indication: INFLUENZA

REACTIONS (4)
  - HEPATIC FAILURE [None]
  - BRAIN INJURY [None]
  - DRUG ADMINISTRATION ERROR [None]
  - TOXICITY TO VARIOUS AGENTS [None]
